FAERS Safety Report 9629931 (Version 4)
Quarter: 2014Q1

REPORT INFORMATION
  Report Type: Report from Study
  Country: US (occurrence: US)
  Receive Date: 20131017
  Receipt Date: 20140110
  Transmission Date: 20141002
  Serious: Yes (Hospitalization)
  Sender: FDA-Public Use
  Company Number: US-PFIZER INC-2013295092

PATIENT
  Age: 73 Year
  Sex: Male
  Weight: 81.39 kg

DRUGS (15)
  1. SYMBICORT [Concomitant]
  2. TERAZOSIN [Concomitant]
  3. PF-04136309 [Suspect]
     Indication: PANCREATIC CARCINOMA
     Dosage: 500 MG, 2X/DAY
     Route: 048
     Dates: start: 20130930, end: 20131012
  4. FLUOROURACIL [Suspect]
     Indication: PANCREATIC CARCINOMA
     Dosage: 800 MG, CYCLIC, Q 2 WEEKS
     Route: 040
     Dates: start: 20130930, end: 20131002
  5. FLUOROURACIL [Suspect]
     Dosage: 4824 MG, CIVI PUMP CYCLIC
     Route: 042
     Dates: start: 20130930, end: 20131002
  6. IRINOTECAN HCL [Suspect]
     Indication: PANCREATIC CARCINOMA
     Dosage: 362 MG, CYCLIC, Q 2 WEEKS
     Route: 042
     Dates: start: 20130930, end: 20131002
  7. ELOXATIN [Suspect]
     Indication: PANCREATIC CARCINOMA
     Dosage: 170 MG, CYCLIC, Q 2 WEEKS
     Route: 042
     Dates: start: 20130930, end: 20131002
  8. LEUCOVORIN [Suspect]
     Indication: PANCREATIC CARCINOMA
     Dosage: 800 MG, CYCLIC, Q 2 WEEKS
     Route: 042
     Dates: start: 20130930, end: 20131002
  9. ASPIRIN [Concomitant]
  10. ATORVASTATIN CALCIUM [Concomitant]
  11. CLOPIDOGREL BISULFATE [Concomitant]
  12. DRONABINOL [Concomitant]
  13. ENOXAPARIN SODIUM [Concomitant]
  14. HYDROCODONE-ACETAMINOPHEN [Concomitant]
  15. LOSARTAN POTASSIUM [Concomitant]

REACTIONS (2)
  - Febrile neutropenia [Recovered/Resolved]
  - Abdominal pain [Recovered/Resolved]
